FAERS Safety Report 4967352-5 (Version None)
Quarter: 2006Q2

REPORT INFORMATION
  Report Type: 
  Country: None (occurrence: None)
  Receive Date: 20060404
  Receipt Date: 20060324
  Transmission Date: 20061013
  Serious: Yes (Life-Threatening)
  Sender: FDA-Public Use
  Company Number: 863#3#2006-00005

PATIENT
  Age: 33 Year
  Sex: Male

DRUGS (7)
  1. IDROLAX (MACROGOL) [Suspect]
     Indication: CONSTIPATION
     Dosage: 1.2 SACHETS DAILY
     Route: 048
  2. TROPATEPINE HYDROCHLORIDE [Suspect]
     Indication: PSYCHOTIC DISORDER
     Route: 048
  3. LEVOMEPROMAZINE [Suspect]
     Indication: PSYCHOTIC DISORDER
     Route: 030
  4. FLUPENTIXOL (FLUPENTIXOL DIHYDROCHLORIDE) [Suspect]
     Indication: PSYCHOTIC DISORDER
     Dosage: 120 DF
     Route: 048
  5. VALPROMIDE [Concomitant]
  6. ALPRAZOLAM [Concomitant]
  7. NORMACOL (FRANGULA EXTRACT, STERCULIA) [Concomitant]

REACTIONS (5)
  - CARDIO-RESPIRATORY DISTRESS [None]
  - MEGACOLON [None]
  - PNEUMATOSIS [None]
  - PNEUMONIA ASPIRATION [None]
  - SHOCK [None]
